FAERS Safety Report 9675602 (Version 1)
Quarter: 2013Q4

REPORT INFORMATION
  Report Type: Spontaneous
  Country: IT (occurrence: IT)
  Receive Date: 20131107
  Receipt Date: 20131107
  Transmission Date: 20140711
  Serious: Yes (Hospitalization)
  Sender: FDA-Public Use
  Company Number: IT-FRI-1000050794

PATIENT
  Age: 82 Year
  Sex: Female
  Weight: 59 kg

DRUGS (1)
  1. MEMANTINE [Suspect]
     Indication: COGNITIVE DISORDER
     Dosage: 20 MG
     Route: 048

REACTIONS (2)
  - Thrombocytopenia [Recovered/Resolved]
  - Mouth haemorrhage [Recovered/Resolved]
